FAERS Safety Report 16635088 (Version 1)
Quarter: 2019Q3

REPORT INFORMATION
  Report Type: Spontaneous
  Country: US (occurrence: US)
  Receive Date: 20190726
  Receipt Date: 20190726
  Transmission Date: 20191004
  Serious: No
  Sender: FDA-Public Use
  Company Number: US-GLAXOSMITHKLINE-US2019131833

PATIENT
  Age: 88 Year
  Sex: Female

DRUGS (1)
  1. DICLOFENAC SODIUM GEL [Suspect]
     Active Substance: DICLOFENAC SODIUM
     Indication: ARTHRALGIA
     Dosage: A DROP OF IT
     Route: 061
     Dates: start: 20190718

REACTIONS (4)
  - Condition aggravated [Recovering/Resolving]
  - Gait disturbance [Not Recovered/Not Resolved]
  - Product use issue [Unknown]
  - Arthralgia [Recovering/Resolving]

NARRATIVE: CASE EVENT DATE: 20190718
